FAERS Safety Report 24988217 (Version 1)
Quarter: 2025Q1

REPORT INFORMATION
  Report Type: Spontaneous
  Country: US (occurrence: US)
  Receive Date: 20250220
  Receipt Date: 20250220
  Transmission Date: 20250409
  Serious: Yes (Death)
  Sender: ENDO
  Company Number: US-ENDO USA, INC.-2025-000521

PATIENT
  Age: 66 Year
  Sex: Male

DRUGS (4)
  1. ALPRAZOLAM [Suspect]
     Active Substance: ALPRAZOLAM
     Indication: Product used for unknown indication
     Route: 048
  2. METOPROLOL [Suspect]
     Active Substance: METOPROLOL
     Indication: Product used for unknown indication
     Route: 048
  3. CITALOPRAM [Suspect]
     Active Substance: CITALOPRAM
     Indication: Product used for unknown indication
     Route: 048
  4. LOPERAMIDE [Suspect]
     Active Substance: LOPERAMIDE
     Indication: Product used for unknown indication
     Route: 048

REACTIONS (1)
  - Completed suicide [Fatal]

NARRATIVE: CASE EVENT DATE: 20230101
